FAERS Safety Report 23669961 (Version 5)
Quarter: 2024Q3

REPORT INFORMATION
  Report Type: Spontaneous
  Country: US (occurrence: US)
  Receive Date: 20240325
  Receipt Date: 20240930
  Transmission Date: 20241016
  Serious: Yes (Other)
  Sender: PFIZER
  Company Number: US-PFIZER INC-202400069983

PATIENT
  Age: 16 Year
  Sex: Male
  Weight: 63.492 kg

DRUGS (4)
  1. CIBINQO [Suspect]
     Active Substance: ABROCITINIB
     Indication: Eczema
     Dosage: 100 MG, 1X/DAY (ONE PILL A DAY)
     Route: 048
     Dates: start: 202401
  2. CIBINQO [Suspect]
     Active Substance: ABROCITINIB
     Dosage: 200 MG, 1X/DAY (TWO PILLS A DAY)
     Dates: start: 20240215
  3. CIBINQO [Suspect]
     Active Substance: ABROCITINIB
     Dosage: 200MG ONE TABLET DAILY
  4. CIBINQO [Suspect]
     Active Substance: ABROCITINIB
     Dosage: TAKE ONE TABLET BY MOUTH ONCE DAILY
     Route: 048

REACTIONS (7)
  - Herpes ophthalmic [Unknown]
  - Eye swelling [Unknown]
  - Swelling of eyelid [Unknown]
  - Ocular hyperaemia [Unknown]
  - Hypersensitivity [Unknown]
  - Lacrimation increased [Unknown]
  - COVID-19 [Recovering/Resolving]

NARRATIVE: CASE EVENT DATE: 20240501
